FAERS Safety Report 16318802 (Version 1)
Quarter: 2019Q2

REPORT INFORMATION
  Report Type: Spontaneous
  Country: US (occurrence: US)
  Receive Date: 20190516
  Receipt Date: 20190516
  Transmission Date: 20190711
  Serious: Yes (Hospitalization, Other)
  Sender: FDA-Public Use
  Company Number: US-ACCORD-127666

PATIENT
  Age: 59 Year
  Sex: Female

DRUGS (1)
  1. MYCOPHENOLATE MOFETIL/MYCOPHENOLATE SODIUM/MYCOPHENOLIC ACID [Suspect]
     Active Substance: MYCOPHENOLIC ACID
     Indication: SYSTEMIC SCLERODERMA

REACTIONS (6)
  - Off label use [Unknown]
  - Anaemia [Unknown]
  - Infective pericardial effusion [Recovering/Resolving]
  - Cytomegalovirus infection [Recovered/Resolved]
  - Leukopenia [Recovered/Resolved]
  - Hepatic enzyme increased [Recovered/Resolved]
